FAERS Safety Report 13428914 (Version 1)
Quarter: 2017Q2

REPORT INFORMATION
  Report Type: Spontaneous
  Country: US (occurrence: US)
  Receive Date: 20170411
  Receipt Date: 20170411
  Transmission Date: 20170830
  Serious: Yes (Other)
  Sender: FDA-Public Use
  Company Number: US-MYLANLABS-2017M1022502

PATIENT

DRUGS (3)
  1. ALLOPURINOL. [Suspect]
     Active Substance: ALLOPURINOL
     Indication: GOUTY ARTHRITIS
     Route: 065
     Dates: start: 201510
  2. COLCHICINE. [Concomitant]
     Active Substance: COLCHICINE
     Indication: GOUTY ARTHRITIS
     Route: 065
     Dates: start: 201510
  3. FEBUXOSTAT. [Suspect]
     Active Substance: FEBUXOSTAT
     Indication: GOUTY TOPHUS
     Route: 065

REACTIONS (4)
  - Rash [Recovered/Resolved]
  - Drug reaction with eosinophilia and systemic symptoms [Recovered/Resolved]
  - Tubulointerstitial nephritis [Recovering/Resolving]
  - Drug cross-reactivity [Recovering/Resolving]
